FAERS Safety Report 5736483-4 (Version None)
Quarter: 2008Q2

REPORT INFORMATION
  Report Type: 
  Country: None (occurrence: None)
  Receive Date: 20080509
  Receipt Date: 20080509
  Transmission Date: 20081010
  Serious: Yes (Other)
  Sender: FDA-Public Use
  Company Number: None

PATIENT
  Age: 56 Year
  Sex: Female
  Weight: 47.6277 kg

DRUGS (8)
  1. PREDNISONE [Suspect]
     Indication: ADRENAL INSUFFICIENCY
     Dosage: 4 MG DAY PO
     Route: 048
  2. PREDNISONE [Suspect]
     Indication: IATROGENIC INJURY
     Dosage: 4 MG DAY PO
     Route: 048
  3. PREDNISONE [Suspect]
     Indication: ASTHMA
     Dosage: 4 MG DAY PO
     Route: 048
  4. PREDNISONE [Suspect]
     Indication: COLITIS ULCERATIVE
     Dosage: 4 MG DAY PO
     Route: 048
  5. MERCAPTOPURINE [Concomitant]
  6. FOSAMAX [Concomitant]
  7. ESTRADIOL [Concomitant]
  8. NEXIUM [Concomitant]

REACTIONS (12)
  - ADRENAL DISORDER [None]
  - COLITIS ULCERATIVE [None]
  - CONDITION AGGRAVATED [None]
  - CUSHINGOID [None]
  - DYSPEPSIA [None]
  - ENERGY INCREASED [None]
  - FATIGUE [None]
  - FEELING ABNORMAL [None]
  - IRRITABILITY [None]
  - PHARMACEUTICAL PRODUCT COMPLAINT [None]
  - WEIGHT DECREASED [None]
  - WEIGHT INCREASED [None]
